FAERS Safety Report 8944456 (Version 1)
Quarter: 2012Q4

REPORT INFORMATION
  Report Type: 
  Country: US (occurrence: US)
  Receive Date: 20121204
  Receipt Date: 20121204
  Transmission Date: 20130627
  Serious: No
  Sender: FDA-Public Use
  Company Number: US-AMGEN-USASP2012061630

PATIENT
  Age: 61 Year
  Sex: Male

DRUGS (1)
  1. ENBREL [Suspect]
     Indication: ERYTHRODERMIC PSORIASIS
     Dosage: 50 mg, 2 times/wk
     Dates: start: 20120305

REACTIONS (5)
  - Precancerous skin lesion [Recovered/Resolved]
  - Pruritus [Not Recovered/Not Resolved]
  - Urticaria [Not Recovered/Not Resolved]
  - Nodule [Not Recovered/Not Resolved]
  - Skin injury [Not Recovered/Not Resolved]
